FAERS Safety Report 20993590 (Version 1)
Quarter: 2022Q2

REPORT INFORMATION
  Report Type: Spontaneous
  Country: US (occurrence: None)
  Receive Date: 20220622
  Receipt Date: 20220622
  Transmission Date: 20220721
  Serious: No
  Sender: FDA-Public Use
  Company Number: None

PATIENT
  Age: 71 Year
  Sex: Female
  Weight: 136.08 kg

DRUGS (1)
  1. STELARA [Suspect]
     Active Substance: USTEKINUMAB
     Indication: Psoriasis
     Dosage: INJECT 90MG  SUBCUTANEOUSLY AT WEEK 0 AND WEEK 4   AS DIRECTED
     Route: 058
     Dates: start: 202107

REACTIONS (2)
  - Infection [None]
  - Therapy interrupted [None]
